FAERS Safety Report 12666557 (Version 1)
Quarter: 2016Q3

REPORT INFORMATION
  Report Type: Spontaneous
  Country: TW (occurrence: TW)
  Receive Date: 20160819
  Receipt Date: 20160819
  Transmission Date: 20161109
  Serious: Yes (Hospitalization, Other)
  Sender: FDA-Public Use
  Company Number: TW-AMGEN-TWNSP2016012582

PATIENT
  Age: 54 Year
  Sex: Female

DRUGS (4)
  1. MTX [Concomitant]
     Active Substance: METHOTREXATE SODIUM
     Indication: RHEUMATOID ARTHRITIS
     Dosage: 2.5MG, 4 DF, WEEKLY
  2. ENBREL [Suspect]
     Active Substance: ETANERCEPT
     Dosage: 25 MG, Q2W
     Route: 058
     Dates: start: 201607
  3. ENBREL [Suspect]
     Active Substance: ETANERCEPT
     Indication: RHEUMATOID ARTHRITIS
     Dosage: 25 MG, BIW
     Route: 058
     Dates: start: 20121225
  4. SULFASALAZINE. [Concomitant]
     Active Substance: SULFASALAZINE
     Indication: RHEUMATOID ARTHRITIS
     Dosage: 2 DF, QD

REACTIONS (3)
  - Haemoptysis [Recovering/Resolving]
  - Lung neoplasm malignant [Unknown]
  - Dyspnoea [Unknown]
